FAERS Safety Report 6999197-9 (Version None)
Quarter: 2010Q3

REPORT INFORMATION
  Report Type: 
  Country: None (occurrence: None)
  Receive Date: 20100920
  Receipt Date: 20100309
  Transmission Date: 20110219
  Serious: No
  Sender: FDA-Public Use
  Company Number: US-ASTRAZENECA-2009SE19329

PATIENT
  Age: 53 Year
  Sex: Male
  Weight: 86.2 kg

DRUGS (4)
  1. SEROQUEL [Suspect]
     Indication: DEPRESSION
     Route: 048
     Dates: start: 19990101
  2. ZYPREXA [Concomitant]
     Dates: start: 20020101, end: 20030101
  3. SYMBYAX [Concomitant]
     Dates: start: 20020101, end: 20030101
  4. LEXAPRO [Concomitant]

REACTIONS (3)
  - INFLUENZA [None]
  - OBESITY [None]
  - TYPE 2 DIABETES MELLITUS [None]
